FAERS Safety Report 10328737 (Version 2)
Quarter: 2014Q3

REPORT INFORMATION
  Report Type: Spontaneous
  Country: US (occurrence: US)
  Receive Date: 20140721
  Receipt Date: 20140811
  Transmission Date: 20150326
  Serious: Yes (Other)
  Sender: FDA-Public Use
  Company Number: US-SA-2014SA093897

PATIENT
  Age: 61 Year
  Sex: Male
  Weight: 99.7 kg

DRUGS (9)
  1. ANALGESICS [Concomitant]
     Active Substance: UNSPECIFIED INGREDIENT
  2. PROMETHAZINE [Concomitant]
     Active Substance: PROMETHAZINE\PROMETHAZINE HYDROCHLORIDE
     Indication: PRURITUS
  3. APIDRA [Suspect]
     Active Substance: INSULIN GLULISINE
     Indication: TYPE 2 DIABETES MELLITUS
     Dosage: 2 TO 4 DOSES A DAY 10UX2 PLUS SLIDING SCALE?VIAL
     Route: 065
     Dates: end: 2013
  4. PROMETHAZINE [Concomitant]
     Active Substance: PROMETHAZINE\PROMETHAZINE HYDROCHLORIDE
     Indication: NAUSEA
  5. ANTIHYPERTENSIVES [Concomitant]
     Active Substance: UNSPECIFIED INGREDIENT
  6. LANTUS [Suspect]
     Active Substance: INSULIN GLARGINE
     Indication: TYPE 2 DIABETES MELLITUS
     Dosage: DOSE: 25 UNITS IN THE MORNING AND 15-20 UNITS AT BEDTIME?VIAL
     Route: 065
     Dates: start: 2000
  7. LANTUS [Suspect]
     Active Substance: INSULIN GLARGINE
     Indication: TYPE 2 DIABETES MELLITUS
     Dosage: DOSE: 25 UNITS IN THE MORNING AND 15-20 UNITS AT BEDTIME?VIAL
     Route: 065
     Dates: start: 2000
  8. HUMALOG [Concomitant]
     Active Substance: INSULIN LISPRO
  9. SIMVASTATIN. [Concomitant]
     Active Substance: SIMVASTATIN
     Indication: BLOOD CHOLESTEROL

REACTIONS (5)
  - Arthropathy [Not Recovered/Not Resolved]
  - Blood glucose increased [Not Recovered/Not Resolved]
  - Swelling [Unknown]
  - Glycosylated haemoglobin increased [Not Recovered/Not Resolved]
  - Off label use [Unknown]

NARRATIVE: CASE EVENT DATE: 2000
